FAERS Safety Report 9776172 (Version 2)
Quarter: 2013Q4

REPORT INFORMATION
  Report Type: Report from Study
  Country: JP (occurrence: JP)
  Receive Date: 20131220
  Receipt Date: 20131220
  Transmission Date: 20140711
  Serious: Yes (Hospitalization, Other)
  Sender: FDA-Public Use
  Company Number: JP-OTSUKA-02100-JPN-07-0190

PATIENT
  Age: 63 Year
  Sex: Male

DRUGS (27)
  1. PLETAAL [Suspect]
     Indication: LACUNAR INFARCTION
     Dosage: 100 MG, BID
     Route: 048
     Dates: start: 20041203, end: 20070112
  2. EUGLUCON [Concomitant]
     Route: 048
     Dates: start: 20041130, end: 20050524
  3. EUGLUCON [Concomitant]
     Route: 048
     Dates: start: 20050525, end: 20060616
  4. GLUCOBAY [Concomitant]
     Dosage: 300 MG, UNKNOWN
     Route: 048
     Dates: start: 20041130
  5. DIBETOS B [Concomitant]
     Route: 048
     Dates: start: 20041208, end: 20041220
  6. DIBETOS B [Concomitant]
     Route: 048
     Dates: start: 20041221, end: 20050913
  7. DIBETOS B [Concomitant]
     Route: 048
     Dates: start: 20050914, end: 20060616
  8. DIBETOS B [Concomitant]
     Route: 048
     Dates: start: 20060617, end: 20060714
  9. COVERSYL [Concomitant]
     Route: 048
     Dates: start: 20050119, end: 20050913
  10. DIOVAN [Concomitant]
     Route: 048
     Dates: start: 20050730, end: 20050819
  11. DIOVAN [Concomitant]
     Route: 048
     Dates: start: 20050821, end: 20060324
  12. FLUITRAN [Concomitant]
     Route: 048
     Dates: start: 20050730
  13. ADALAT -CR [Concomitant]
     Route: 048
     Dates: start: 20050914, end: 20051116
  14. ADALAT -CR [Concomitant]
     Route: 048
     Dates: start: 20051117, end: 20060113
  15. ADALAT -CR [Concomitant]
     Route: 048
     Dates: start: 20060114, end: 20060324
  16. ADALAT -CR [Concomitant]
     Route: 048
     Dates: start: 20060325
  17. OLMETEC [Concomitant]
     Route: 048
     Dates: start: 20060325
  18. AMARYL [Concomitant]
     Route: 048
     Dates: start: 20060617, end: 20060714
  19. AMARYL [Concomitant]
     Route: 048
     Dates: start: 20060715, end: 20060908
  20. AMARYL [Concomitant]
     Route: 048
     Dates: start: 20060909
  21. LASIX [Concomitant]
     Route: 048
     Dates: start: 20060617
  22. SALOBEL [Concomitant]
     Route: 048
     Dates: start: 20060617, end: 20060714
  23. SALOBEL [Concomitant]
     Route: 048
     Dates: start: 20060715
  24. WYTENS [Concomitant]
     Route: 048
     Dates: start: 20060715
  25. LIPITOR [Concomitant]
     Route: 048
     Dates: start: 20070106
  26. ALDACTONE A [Concomitant]
     Route: 048
     Dates: start: 20070106
  27. MAGMITT [Concomitant]
     Route: 048
     Dates: start: 20070106

REACTIONS (9)
  - Electrocardiogram T wave abnormal [Not Recovered/Not Resolved]
  - Renal disorder [Not Recovered/Not Resolved]
  - Angina pectoris [Recovering/Resolving]
  - Cardiac failure [Recovering/Resolving]
  - Oedema peripheral [Recovering/Resolving]
  - Bundle branch block right [Recovered/Resolved]
  - Hyperuricaemia [Recovered/Resolved]
  - Left ventricular hypertrophy [Not Recovered/Not Resolved]
  - Glycosylated haemoglobin increased [Recovered/Resolved]
